FAERS Safety Report 6610925-4 (Version None)
Quarter: 2010Q1

REPORT INFORMATION
  Report Type: 
  Country: None (occurrence: None)
  Receive Date: 20100222
  Receipt Date: 20100122
  Transmission Date: 20100710
  Serious: Yes (Disabling)
  Sender: FDA-Public Use
  Company Number: 2010-0244

PATIENT
  Age: 61 Year
  Sex: Female

DRUGS (1)
  1. DYSPORT [Suspect]
     Indication: SKIN WRINKLING
     Dosage: (SINGLE CYCLE), INTRAMUSCULAR
     Route: 030
     Dates: start: 20091119, end: 20091119

REACTIONS (1)
  - DIPLOPIA [None]
